FAERS Safety Report 8327907 (Version 5)
Quarter: 2013Q3

REPORT INFORMATION
  Report Type: Report from Study
  Country: BE (occurrence: BE)
  Receive Date: 20120109
  Receipt Date: 20130906
  Transmission Date: 20140515
  Serious: Yes (Hospitalization)
  Sender: FDA-Public Use
  Company Number: PHHO2011BE021386

PATIENT
  Age: 47 Year
  Sex: Male
  Weight: 102 kg

DRUGS (10)
  1. ACETYLSALICYLIC ACID [Suspect]
  2. PLACEBO [Suspect]
     Indication: CORONARY ARTERY DISEASE
     Route: 048
     Dates: start: 20100104, end: 20111207
  3. PLACEBO [Suspect]
     Route: 048
     Dates: start: 20111217
  4. ALISKIREN [Suspect]
     Dosage: 150 MG, UNK
  5. ASAFLOW [Suspect]
     Indication: PROPHYLAXIS
     Dosage: 80 MG, QD
     Route: 048
     Dates: start: 20091207, end: 20111208
  6. AMOXICILLIN [Concomitant]
  7. TROPHEN [Concomitant]
  8. CHLORAMPHENICOL [Concomitant]
  9. EMCONCOR [Concomitant]
     Indication: HYPERTENSION
     Dosage: 2.5 MG, QD
     Route: 048
     Dates: start: 20091216
  10. SIMVASTATIN [Concomitant]
     Indication: HYPERCHOLESTEROLAEMIA
     Dosage: 40 MG, QD
     Route: 048
     Dates: start: 20091203

REACTIONS (2)
  - Upper gastrointestinal haemorrhage [Recovered/Resolved]
  - Concomitant disease progression [Recovered/Resolved]
